FAERS Safety Report 8265144-5 (Version None)
Quarter: 2012Q2

REPORT INFORMATION
  Report Type: 
  Country: None (occurrence: None)
  Receive Date: 20120403
  Receipt Date: 20111128
  Transmission Date: 20120825
  Serious: Yes (Other)
  Sender: FDA-Public Use
  Company Number: 2012SP017053

PATIENT
  Sex: Female
  Weight: 62 kg

DRUGS (4)
  1. PEGASYS [Suspect]
     Indication: HEPATITIS C
     Dosage: 180 MCG;QW;SC
     Route: 058
     Dates: start: 20110826, end: 20111122
  2. COPEGUS [Suspect]
     Indication: HEPATITIS C
     Dosage: 400 MG;QD;PO
     Route: 048
     Dates: end: 20111122
  3. BISOPROLOL [Concomitant]
  4. VICTRELIS [Suspect]
     Indication: HEPATITIS C
     Dosage: 2400 MG;QD;PO
     Route: 048
     Dates: end: 20111122

REACTIONS (1)
  - RETINOPATHY [None]
